FAERS Safety Report 5968722-9 (Version None)
Quarter: 2008Q4

REPORT INFORMATION
  Report Type: 
  Country: None (occurrence: None)
  Receive Date: 20081126
  Receipt Date: 20081121
  Transmission Date: 20090506
  Serious: Yes (Hospitalization)
  Sender: FDA-Public Use
  Company Number: A0758416A

PATIENT
  Age: 46 Year
  Sex: Female
  Weight: 64.5 kg

DRUGS (2)
  1. AVANDIA [Suspect]
     Dosage: 4MG PER DAY
     Route: 065
     Dates: start: 20060201, end: 20060922
  2. METFORMIN HCL [Concomitant]
     Dates: start: 20060201

REACTIONS (1)
  - MYOCARDIAL INFARCTION [None]
